FAERS Safety Report 24619736 (Version 1)
Quarter: 2024Q4

REPORT INFORMATION
  Report Type: Spontaneous
  Country: GB (occurrence: GB)
  Receive Date: 20241114
  Receipt Date: 20241114
  Transmission Date: 20250115
  Serious: Yes (Other)
  Sender: AUROBINDO
  Company Number: GB-VIIV HEALTHCARE-GB2024EME132622

PATIENT
  Age: 40 Year

DRUGS (4)
  1. DARUNAVIR [Interacting]
     Active Substance: DARUNAVIR
     Indication: Product used for unknown indication
     Dosage: UNK
     Route: 048
  2. RITONAVIR [Interacting]
     Active Substance: RITONAVIR
     Indication: Product used for unknown indication
     Dosage: UNK
     Route: 048
  3. CABOTEGRAVIR [Interacting]
     Active Substance: CABOTEGRAVIR
     Indication: Product used for unknown indication
     Dosage: UNK
     Route: 065
  4. RILPIVIRINE [Interacting]
     Active Substance: RILPIVIRINE
     Indication: Product used for unknown indication
     Dosage: UNK
     Route: 065

REACTIONS (3)
  - Lower respiratory tract infection [Unknown]
  - Viral load increased [Recovering/Resolving]
  - Labelled drug-drug interaction medication error [Unknown]
